FAERS Safety Report 8056674-X (Version None)
Quarter: 2012Q1

REPORT INFORMATION
  Report Type: 
  Country: None (occurrence: None)
  Receive Date: 20120119
  Receipt Date: 20120110
  Transmission Date: 20120608
  Serious: Yes (Hospitalization)
  Sender: FDA-Public Use
  Company Number: SK-ASTRAZENECA-2012SE02563

PATIENT
  Age: 23642 Day
  Sex: Male

DRUGS (6)
  1. BISOPROLOL FUMARATE [Concomitant]
     Indication: CORONARY ARTERY DISEASE
     Route: 048
  2. TORVACARD [Concomitant]
     Indication: HYPERLIPIDAEMIA
     Route: 048
  3. ASPIRIN [Concomitant]
     Route: 048
  4. PLAVIX [Suspect]
     Indication: CORONARY ARTERY DISEASE
     Route: 048
     Dates: start: 20110909, end: 20111211
  5. PRESTARIUM [Concomitant]
     Indication: HYPERTENSION
     Route: 048
  6. FUROSEMIDE [Concomitant]
     Indication: HYPERTENSION
     Route: 048

REACTIONS (1)
  - MALLORY-WEISS SYNDROME [None]
